FAERS Safety Report 17665727 (Version 1)
Quarter: 2020Q2

REPORT INFORMATION
  Report Type: Report from Study
  Country: US (occurrence: US)
  Receive Date: 20200414
  Receipt Date: 20200414
  Transmission Date: 20200713
  Serious: Yes (Other)
  Sender: FDA-Public Use
  Company Number: US-MYLANLABS-2020M1037185

PATIENT
  Age: 54 Year
  Sex: Female
  Weight: 68 kg

DRUGS (4)
  1. KETAMINE [Suspect]
     Active Substance: KETAMINE
     Indication: SEDATIVE THERAPY
     Dosage: 4.4 MILLIGRAM/KILOGRAM
     Route: 030
  2. LORAZEPAM. [Concomitant]
     Active Substance: LORAZEPAM
     Indication: PRODUCT USED FOR UNKNOWN INDICATION
     Dosage: 2 DOSES
     Route: 042
  3. KETAMINE [Suspect]
     Active Substance: KETAMINE
     Indication: DELIRIUM
  4. KETAMINE [Suspect]
     Active Substance: KETAMINE
     Indication: AGITATION

REACTIONS (1)
  - Respiratory disorder [Unknown]
